FAERS Safety Report 5089126-X (Version None)
Quarter: 2006Q3

REPORT INFORMATION
  Report Type: 
  Country: None (occurrence: None)
  Receive Date: 20060825
  Receipt Date: 20060824
  Transmission Date: 20061208
  Serious: Yes (Life-Threatening)
  Sender: FDA-Public Use
  Company Number: DE-BOEHRINGER INGELHEIM PHARMACEUTICALS, INC.-2006-DE-04432DE

PATIENT
  Sex: Male
  Weight: 82 kg

DRUGS (5)
  1. AGGRENOX [Suspect]
     Indication: CEREBROVASCULAR ACCIDENT
     Route: 048
     Dates: start: 20040301, end: 20060701
  2. PANTOZOL [Concomitant]
  3. OLMETEC [Concomitant]
  4. PRAVASIN [Concomitant]
     Route: 048
  5. NATRILIX [Concomitant]
     Route: 048

REACTIONS (2)
  - HAEMOGLOBIN DECREASED [None]
  - SMALL INTESTINAL HAEMORRHAGE [None]
